FAERS Safety Report 7308679-1 (Version None)
Quarter: 2011Q1

REPORT INFORMATION
  Report Type: 
  Country: None (occurrence: None)
  Receive Date: 20110210
  Receipt Date: 20110203
  Transmission Date: 20110831
  Serious: Yes (Hospitalization)
  Sender: FDA-Public Use
  Company Number: WAES 1010USA03660

PATIENT
  Age: 77 Year
  Sex: Female
  Weight: 75.7507 kg

DRUGS (6)
  1. TRAVATAN Z [Concomitant]
  2. TOBRADEX [Concomitant]
  3. ADVAIR DISKUS 100/50 [Concomitant]
  4. PREDNISOLONE [Concomitant]
  5. RIDAFOROLIMUS [Suspect]
     Indication: NON-SMALL CELL LUNG CANCER
     Dosage: 40 MG/DAILY/PO
     Route: 048
     Dates: start: 20100927, end: 20101025
  6. PRINIVIL [Suspect]
     Indication: HYPERTENSION
     Dosage: 20 MG/DAILY/PO
     Route: 048
     Dates: start: 20080101, end: 20101025

REACTIONS (9)
  - PLEURAL EFFUSION [None]
  - PLATELET COUNT DECREASED [None]
  - HYPERSENSITIVITY [None]
  - DECREASED APPETITE [None]
  - KLEBSIELLA INFECTION [None]
  - ENTEROBACTER INFECTION [None]
  - ANGIOEDEMA [None]
  - NEUTROPENIA [None]
  - LOBAR PNEUMONIA [None]
